FAERS Safety Report 6486767-X (Version None)
Quarter: 2009Q4

REPORT INFORMATION
  Report Type: 
  Country: None (occurrence: None)
  Receive Date: 20091210
  Receipt Date: 20091202
  Transmission Date: 20100525
  Serious: Yes (Hospitalization)
  Sender: FDA-Public Use
  Company Number: FR-ABBOTT-09P-056-0575858-00

PATIENT
  Sex: Female
  Weight: 72 kg

DRUGS (10)
  1. HUMIRA [Suspect]
     Indication: RHEUMATOID ARTHRITIS
     Route: 058
     Dates: start: 20040716, end: 20050606
  2. HUMIRA [Suspect]
     Route: 058
     Dates: start: 20070401
  3. CORTANCYL [Concomitant]
     Indication: RHEUMATOID ARTHRITIS
     Dates: start: 20020101
  4. LANSOPRAZOLE [Concomitant]
     Indication: GASTROOESOPHAGEAL REFLUX DISEASE
     Dates: start: 20050101, end: 20050101
  5. ACTONEL [Concomitant]
     Indication: OSTEOPOROSIS PROPHYLAXIS
  6. OROCAL [Concomitant]
     Indication: OSTEOPOROSIS PROPHYLAXIS
  7. KALEORID [Concomitant]
     Indication: MINERAL SUPPLEMENTATION
  8. TEMESTA [Concomitant]
     Indication: ANXIETY
  9. HUMIRA [Concomitant]
     Indication: RHEUMATOID ARTHRITIS
     Route: 058
     Dates: start: 20031101
  10. LEVOTHYROXINE SODIUM [Concomitant]
     Indication: THYROIDITIS
     Dates: start: 20041201, end: 20050701

REACTIONS (3)
  - DIARRHOEA [None]
  - MALAISE [None]
  - VERTIGO [None]
